FAERS Safety Report 15764137 (Version 1)
Quarter: 2018Q4

REPORT INFORMATION
  Report Type: Spontaneous
  Country: JP (occurrence: JP)
  Receive Date: 20181227
  Receipt Date: 20181227
  Transmission Date: 20190205
  Serious: Yes (Hospitalization, Other)
  Sender: FDA-Public Use
  Company Number: JP-ASTRAZENECA-2018SF61691

PATIENT
  Age: 22223 Day
  Sex: Male
  Weight: 54 kg

DRUGS (7)
  1. IMFINZI [Suspect]
     Active Substance: DURVALUMAB
     Indication: NON-SMALL CELL LUNG CANCER
     Route: 041
     Dates: start: 20181129, end: 20181129
  2. LOXOPROFEN [Suspect]
     Active Substance: LOXOPROFEN
     Indication: ARTHRALGIA
     Route: 048
     Dates: start: 20181130
  3. TAKECAB [Concomitant]
     Active Substance: VONOPRAZAN FUMURATE
     Route: 048
  4. ROPION [Suspect]
     Active Substance: FLURBIPROFEN AXETIL
     Dosage: DOSE UNKNOWN
     Route: 065
     Dates: end: 20181205
  5. LUNESTA [Concomitant]
     Active Substance: ESZOPICLONE
     Route: 048
  6. CELECOX [Suspect]
     Active Substance: CELECOXIB
     Indication: ARTHRALGIA
     Dosage: 400 MG DAILY NUMBER OF SEPARATE DOSAGES UNKNOWN
     Route: 065
     Dates: start: 20181130, end: 20181205
  7. MAGMITT [Concomitant]
     Active Substance: MAGNESIUM OXIDE
     Route: 048

REACTIONS (6)
  - Arthralgia [Recovering/Resolving]
  - Joint swelling [Recovering/Resolving]
  - Thirst [Unknown]
  - Arthralgia [Recovering/Resolving]
  - Hepatic function abnormal [Recovered/Resolved]
  - Joint warmth [Recovering/Resolving]

NARRATIVE: CASE EVENT DATE: 20181129
